FAERS Safety Report 14305215 (Version 1)
Quarter: 2017Q4

REPORT INFORMATION
  Report Type: Report from Study
  Country: JP (occurrence: JP)
  Receive Date: 20171219
  Receipt Date: 20171219
  Transmission Date: 20180321
  Serious: Yes (Other)
  Sender: FDA-Public Use
  Company Number: JP-OTSUKA-004351

PATIENT
  Age: 44 Year
  Sex: Female
  Weight: 63.5 kg

DRUGS (16)
  1. RISPERDAL [Concomitant]
     Active Substance: RISPERIDONE
     Indication: SCHIZOPHRENIA
     Dosage: 8 MG, QD
     Route: 048
     Dates: end: 20080602
  2. RISPERIDONE. [Concomitant]
     Active Substance: RISPERIDONE
     Indication: PRODUCT USED FOR UNKNOWN INDICATION
     Dosage: UNK UNK, QD
     Route: 065
  3. ARIPIPRAZOLE. [Suspect]
     Active Substance: ARIPIPRAZOLE
     Dosage: 18 MG, QD
     Route: 048
     Dates: start: 20080429, end: 20080511
  4. RISPERDAL [Concomitant]
     Active Substance: RISPERIDONE
     Indication: HALLUCINATION
     Dosage: 6 MG, QD
     Route: 048
     Dates: start: 20080805, end: 20080811
  5. HIRNAMIN [Concomitant]
     Active Substance: PHENOTHIAZINE
     Indication: INSOMNIA
     Dosage: 100 MG, QD
     Route: 048
  6. LEVOMEPROMAZINE [Concomitant]
     Active Substance: LEVOMEPROMAZINE
     Indication: PRODUCT USED FOR UNKNOWN INDICATION
     Dosage: UNK
     Route: 065
  7. RISPERDAL [Concomitant]
     Active Substance: RISPERIDONE
     Indication: ABNORMAL BEHAVIOUR
     Dosage: 10 MG, QD
     Route: 048
     Dates: start: 20080901
  8. PYRETHIA [Concomitant]
     Active Substance: PROMETHAZINE HYDROCHLORIDE
     Indication: PRODUCT USED FOR UNKNOWN INDICATION
     Dosage: 50 MG, QD
     Route: 065
  9. RISPERDAL [Concomitant]
     Active Substance: RISPERIDONE
     Indication: DELUSION
     Dosage: 8 MG, QD
     Route: 048
     Dates: start: 20080812, end: 20080831
  10. UBRETID [Concomitant]
     Active Substance: DISTIGMINE BROMIDE
     Indication: PRODUCT USED FOR UNKNOWN INDICATION
     Dosage: 5 MG, QD
     Route: 048
     Dates: end: 20080526
  11. SENNA [Concomitant]
     Active Substance: SENNA LEAF\SENNOSIDES\SENNOSIDES A AND B
     Indication: PRODUCT USED FOR UNKNOWN INDICATION
     Dosage: TAB-ER
     Route: 065
  12. ARIPIPRAZOLE. [Suspect]
     Active Substance: ARIPIPRAZOLE
     Indication: SCHIZOPHRENIA
     Dosage: 12 MG, QD
     Route: 048
     Dates: start: 20080422, end: 20080428
  13. ARIPIPRAZOLE. [Suspect]
     Active Substance: ARIPIPRAZOLE
     Dosage: 30 MG, QD
     Route: 048
     Dates: start: 20080727, end: 20080804
  14. AKINETON [Concomitant]
     Active Substance: BIPERIDEN HYDROCHLORIDE
     Indication: PRODUCT USED FOR UNKNOWN INDICATION
     Dosage: 3 MG, QD
     Route: 048
     Dates: end: 20080630
  15. ARIPIPRAZOLE. [Suspect]
     Active Substance: ARIPIPRAZOLE
     Dosage: 24 MG, QD
     Route: 048
     Dates: start: 20080512, end: 20080726
  16. ARIPIPRAZOLE. [Suspect]
     Active Substance: ARIPIPRAZOLE
     Dosage: 18 MG, QD
     Route: 048
     Dates: start: 20080805, end: 20080811

REACTIONS (3)
  - Abnormal behaviour [Recovered/Resolved]
  - Delusion [Recovered/Resolved]
  - Hallucination [Recovered/Resolved]

NARRATIVE: CASE EVENT DATE: 20080726
